FAERS Safety Report 24632821 (Version 1)
Quarter: 2024Q4

REPORT INFORMATION
  Report Type: Spontaneous
  Country: US (occurrence: US)
  Receive Date: 20241118
  Receipt Date: 20241118
  Transmission Date: 20250115
  Serious: No
  Sender: PERRIGO
  Company Number: US-PERRIGO-24US007014

PATIENT
  Age: 22 Year
  Sex: Female
  Weight: 75.283 kg

DRUGS (1)
  1. OPILL [Suspect]
     Active Substance: NORGESTREL
     Indication: Contraception
     Dosage: 0.075 MG, QD
     Route: 048
     Dates: start: 20240423

REACTIONS (2)
  - Product dose omission issue [Unknown]
  - Medication error [Unknown]

NARRATIVE: CASE EVENT DATE: 20240723
